FAERS Safety Report 11512307 (Version 1)
Quarter: 2015Q3

REPORT INFORMATION
  Report Type: Spontaneous
  Country: US (occurrence: None)
  Receive Date: 20150914
  Receipt Date: 20150914
  Transmission Date: 20151125
  Serious: No
  Sender: FDA-Public Use
  Company Number: UNT-2015-009987

PATIENT
  Age: 74 Year
  Sex: Female
  Weight: 65.8 kg

DRUGS (3)
  1. TYVASO [Suspect]
     Active Substance: TREPROSTINIL
     Indication: PULMONARY ARTERIAL HYPERTENSION
     Dosage: 18-54 UG
     Route: 055
     Dates: start: 20100812
  2. LETAIRIS [Concomitant]
     Active Substance: AMBRISENTAN
  3. REVATIO (SILDENAFIL CITRATE) [Concomitant]

REACTIONS (5)
  - Incorrect dose administered [None]
  - Syncope [None]
  - Pulmonary arterial hypertension [None]
  - Oxygen saturation decreased [None]
  - Dyspnoea [None]
